FAERS Safety Report 6387608-1 (Version None)
Quarter: 2009Q4

REPORT INFORMATION
  Report Type: 
  Country: None (occurrence: None)
  Receive Date: 20091005
  Receipt Date: 20090929
  Transmission Date: 20100525
  Serious: Yes (Death, Other)
  Sender: FDA-Public Use
  Company Number: JP-JNJFOC-20091000156

PATIENT
  Age: 58 Year
  Sex: Female

DRUGS (5)
  1. DUROTEP PATCH [Suspect]
     Indication: CANCER PAIN
     Route: 062
  2. MORPHINE HYDROCHLORIDE [Concomitant]
     Route: 042
  3. MORPHINE HYDROCHLORIDE [Concomitant]
     Indication: CANCER PAIN
     Route: 042
  4. BETAMETHASONE [Concomitant]
     Route: 042
  5. FLURBIPROFEN [Concomitant]
     Route: 042

REACTIONS (4)
  - ILEUS [None]
  - MALAISE [None]
  - OEDEMA [None]
  - RECTAL CANCER RECURRENT [None]
